FAERS Safety Report 5884809-3 (Version None)
Quarter: 2008Q3

REPORT INFORMATION
  Report Type: 
  Country: None (occurrence: None)
  Receive Date: 20080916
  Receipt Date: 20080904
  Transmission Date: 20090109
  Serious: Yes (Hospitalization, Other)
  Sender: FDA-Public Use
  Company Number: CA-ELI_LILLY_AND_COMPANY-CA200807005473

PATIENT
  Age: 85 Year
  Sex: Female

DRUGS (13)
  1. FORTEO [Suspect]
     Indication: OSTEOPOROSIS
     Dosage: 20 UG, DAILY (1/D)
     Route: 058
     Dates: start: 20070917, end: 20080724
  2. FORTEO [Suspect]
     Dosage: 20 UG, DAILY (1/D)
     Route: 058
     Dates: start: 20080101
  3. APO-LEVOCARB [Concomitant]
  4. CALCIUM [Concomitant]
  5. SYNTHROID [Concomitant]
  6. DOCUSATE SODIUM [Concomitant]
  7. NORVASC [Concomitant]
  8. CELEBREX [Concomitant]
  9. ASPIRIN [Concomitant]
     Dosage: UNK, AS NEEDED
  10. TYLENOL                                 /SCH/ [Concomitant]
     Dosage: UNK, AS NEEDED
  11. TEVETEN [Concomitant]
  12. NIZATIDINE [Concomitant]
  13. CALTRATE + VITAMIN D [Concomitant]

REACTIONS (10)
  - ABDOMINAL PAIN [None]
  - ASTHENIA [None]
  - CHEST PAIN [None]
  - CHILLS [None]
  - CHOLECYSTITIS INFECTIVE [None]
  - CHOLELITHIASIS [None]
  - HYPERHIDROSIS [None]
  - HYPOTENSION [None]
  - VOMITING [None]
  - WEIGHT DECREASED [None]
